FAERS Safety Report 11733137 (Version 1)
Quarter: 2015Q4

REPORT INFORMATION
  Report Type: Report from Study
  Country: AE (occurrence: AE)
  Receive Date: 20151113
  Receipt Date: 20151113
  Transmission Date: 20160304
  Serious: Yes (Hospitalization)
  Sender: FDA-Public Use
  Company Number: AE-ROCHE-1659844

PATIENT
  Age: 42 Year
  Sex: Female
  Weight: 63 kg

DRUGS (10)
  1. TOCILIZUMAB [Suspect]
     Active Substance: TOCILIZUMAB
     Indication: RHEUMATOID ARTHRITIS
     Dosage: EVERY 4 WEEKS
     Route: 042
     Dates: start: 20150618
  2. TOCILIZUMAB [Suspect]
     Active Substance: TOCILIZUMAB
     Dosage: MONTHLY
     Route: 042
     Dates: start: 20150802
  3. ESOMEPRAZOLE [Concomitant]
     Active Substance: ESOMEPRAZOLE
     Dosage: ONCE DAILY
     Route: 048
     Dates: start: 20120123
  4. METHOTREXATE [Concomitant]
     Active Substance: METHOTREXATE
     Indication: RHEUMATOID ARTHRITIS
     Dosage: EVERY WEEK
     Route: 048
     Dates: start: 20120123
  5. THYROXIN [Concomitant]
     Active Substance: LEVOTHYROXINE
     Dosage: ONCE DAILY
     Route: 048
  6. TOCILIZUMAB [Suspect]
     Active Substance: TOCILIZUMAB
     Dosage: EVERY 4 WEEKS
     Route: 042
     Dates: start: 20151029
  7. FOLIC ACID. [Concomitant]
     Active Substance: FOLIC ACID
     Dosage: EVERY DAY
     Route: 048
     Dates: start: 20120123
  8. ERGOCALCIFEROL. [Concomitant]
     Active Substance: ERGOCALCIFEROL
     Dosage: ONCE WEEKLY
     Route: 048
     Dates: start: 20121001
  9. TOCILIZUMAB [Suspect]
     Active Substance: TOCILIZUMAB
     Dosage: EVERY 4 WEEKS
     Route: 042
     Dates: start: 20150830
  10. TOCILIZUMAB [Suspect]
     Active Substance: TOCILIZUMAB
     Dosage: EVERY 4 WEEKS
     Route: 042
     Dates: start: 20151004

REACTIONS (1)
  - Intestinal mass [Unknown]

NARRATIVE: CASE EVENT DATE: 20151029
